FAERS Safety Report 6330507-1 (Version None)
Quarter: 2009Q3

REPORT INFORMATION
  Report Type: 
  Country: None (occurrence: None)
  Receive Date: 20090827
  Receipt Date: 20090429
  Transmission Date: 20100115
  Serious: No
  Sender: FDA-Public Use
  Company Number: A0781301A

PATIENT
  Age: 77 Year
  Sex: Male

DRUGS (8)
  1. ACYCLOVIR [Suspect]
     Dosage: 200MG FIVE TIMES PER DAY
     Route: 048
     Dates: start: 20090410, end: 20090419
  2. LEVEMIR [Concomitant]
  3. GLUCOTROL XL [Concomitant]
  4. NEXIUM [Concomitant]
  5. LORAZEPAM [Concomitant]
  6. VELCADE [Concomitant]
  7. TYLENOL (CAPLET) [Concomitant]
  8. LIQUID MORPHINE [Concomitant]

REACTIONS (1)
  - PLATELET COUNT DECREASED [None]
